FAERS Safety Report 5064156-2 (Version None)
Quarter: 2006Q3

REPORT INFORMATION
  Report Type: 
  Country: None (occurrence: None)
  Receive Date: 20060728
  Receipt Date: 20051207
  Transmission Date: 20061208
  Serious: No
  Sender: FDA-Public Use
  Company Number: US-GLAXOSMITHKLINE-A0584989A

PATIENT
  Age: 3 Month
  Sex: Female

DRUGS (2)
  1. ZANTAC [Suspect]
     Dosage: .75ML TWICE PER DAY
     Route: 048
     Dates: start: 20051206
  2. METOCLOPRAMIDE [Concomitant]

REACTIONS (4)
  - LACRIMATION INCREASED [None]
  - PHARMACEUTICAL PRODUCT COMPLAINT [None]
  - RETCHING [None]
  - RHINORRHOEA [None]
